FAERS Safety Report 7919627-5 (Version None)
Quarter: 2011Q4

REPORT INFORMATION
  Report Type: 
  Country: None (occurrence: None)
  Receive Date: 20111115
  Receipt Date: 20111109
  Transmission Date: 20120403
  Serious: Yes (Other)
  Sender: FDA-Public Use
  Company Number: AUR-APL-2011-05771

PATIENT
  Age: 85 Year
  Sex: Male
  Weight: 73 kg

DRUGS (10)
  1. AMLODIPINE [Concomitant]
  2. RAMIPRIL [Concomitant]
  3. METFORMIN HCL [Concomitant]
  4. AXORID (KETOPROFEN) [Concomitant]
  5. BISOPROLOL FUMARATE [Suspect]
     Indication: ATRIAL FIBRILLATION
     Dosage: 2.5 MG, ORAL
     Route: 048
     Dates: start: 20111012, end: 20111019
  6. ATORVASTATIN [Concomitant]
  7. DOXAZOSIN MESYLATE [Concomitant]
  8. GLIPIZIDE [Concomitant]
  9. ASPIRIN [Concomitant]
  10. BENDROFLUMEHIAZIDE (BENDROFLUMETHIAZIDE) [Concomitant]

REACTIONS (1)
  - HYPERSEXUALITY [None]
